FAERS Safety Report 23596587 (Version 6)
Quarter: 2025Q4

REPORT INFORMATION
  Report Type: Report from Study
  Country: IN (occurrence: IN)
  Receive Date: 20240305
  Receipt Date: 20251121
  Transmission Date: 20260118
  Serious: Yes (Other)
  Sender: TAKEDA
  Company Number: IN-TAKEDA-2023TUS115742

PATIENT
  Age: 35 Year
  Sex: Female
  Weight: 55 kg

DRUGS (2)
  1. VEDOLIZUMAB [Suspect]
     Active Substance: VEDOLIZUMAB
     Indication: Colitis ulcerative
     Dosage: 300 MILLIGRAM
  2. VEDOLIZUMAB [Suspect]
     Active Substance: VEDOLIZUMAB
     Dosage: 300 MILLIGRAM

REACTIONS (12)
  - Haematochezia [Recovered/Resolved]
  - Haemoglobin decreased [Unknown]
  - General physical health deterioration [Unknown]
  - Haemoglobin abnormal [Unknown]
  - Mucous stools [Recovered/Resolved]
  - Frequent bowel movements [Unknown]
  - Stress [Unknown]
  - Inappropriate schedule of product administration [Unknown]
  - Abdominal pain [Unknown]
  - Asthenia [Unknown]
  - Cough [Recovering/Resolving]
  - Pyrexia [Recovering/Resolving]
